FAERS Safety Report 4615701-X (Version None)
Quarter: 2005Q2

REPORT INFORMATION
  Report Type: 
  Country: None (occurrence: None)
  Receive Date: 20050311
  Receipt Date: 20041206
  Transmission Date: 20051028
  Serious: No
  Sender: FDA-Public Use
  Company Number: 2004-BP-13312BP

PATIENT
  Age: 79 Year
  Sex: Male

DRUGS (8)
  1. SPIRIVA [Suspect]
     Indication: CHRONIC OBSTRUCTIVE PULMONARY DISEASE
     Dosage: 18 MCG (18 MCG), IH
     Route: 055
     Dates: start: 20041114, end: 20041206
  2. FLOVENT [Concomitant]
  3. FORADIL [Concomitant]
  4. VERAPAMIL [Concomitant]
  5. LANOXIN [Concomitant]
  6. LASIX (LASIX) [Concomitant]
  7. VITAMINS (VITAMINS) [Concomitant]
  8. LORAZEPAM [Concomitant]

REACTIONS (1)
  - DRY MOUTH [None]
